FAERS Safety Report 19879765 (Version 1)
Quarter: 2021Q3

REPORT INFORMATION
  Report Type: Spontaneous
  Country: ZA (occurrence: ZA)
  Receive Date: 20210924
  Receipt Date: 20210924
  Transmission Date: 20211014
  Serious: Yes (Other)
  Sender: FDA-Public Use
  Company Number: ZA-HORMOSAN PHARMA GMBH-2021-17955

PATIENT
  Age: 5 Year
  Sex: Female

DRUGS (3)
  1. LAMOTRIGINE. [Suspect]
     Active Substance: LAMOTRIGINE
     Indication: BENIGN ROLANDIC EPILEPSY
     Dosage: UNK (LOW DOSE)
     Route: 065
  2. LAMOTRIGINE. [Suspect]
     Active Substance: LAMOTRIGINE
     Dosage: 30 MG, QD
     Route: 065
  3. LAMOTRIGINE. [Suspect]
     Active Substance: LAMOTRIGINE
     Dosage: UNK (DOSE INCREASED)
     Route: 065

REACTIONS (1)
  - Apnoea [Unknown]
